FAERS Safety Report 14009786 (Version 1)
Quarter: 2017Q3

REPORT INFORMATION
  Report Type: Report from Study
  Country: CO (occurrence: CO)
  Receive Date: 20170925
  Receipt Date: 20170925
  Transmission Date: 20171128
  Serious: Yes (Life-Threatening, Other)
  Sender: FDA-Public Use
  Company Number: PHHY2017CO104865

PATIENT
  Age: 46 Year
  Sex: Female
  Weight: 73 kg

DRUGS (5)
  1. TRIMETHOPRIM SULFA [Concomitant]
     Active Substance: TRIMETHOPRIM SULFATE
     Indication: PRODUCT USED FOR UNKNOWN INDICATION
     Route: 065
  2. REVOLADE [Suspect]
     Active Substance: ELTROMBOPAG
     Indication: THROMBOCYTOPENIC PURPURA
     Dosage: 50 MG, TID
     Route: 048
     Dates: start: 20170511, end: 201706
  3. CYCLOSPORINE. [Concomitant]
     Active Substance: CYCLOSPORINE
     Indication: PRODUCT USED FOR UNKNOWN INDICATION
     Dosage: UNK
     Route: 065
  4. ACYCLOVIR. [Concomitant]
     Active Substance: ACYCLOVIR
     Indication: PRODUCT USED FOR UNKNOWN INDICATION
     Route: 065
  5. LOSARTAN. [Concomitant]
     Active Substance: LOSARTAN
     Indication: PRODUCT USED FOR UNKNOWN INDICATION
     Dosage: UNK
     Route: 065

REACTIONS (18)
  - Cytomegalovirus test positive [Unknown]
  - Transferrin saturation increased [Unknown]
  - Alanine aminotransferase abnormal [Unknown]
  - Vitamin B12 abnormal [Unknown]
  - Transferrin abnormal [Unknown]
  - Blood urea abnormal [Unknown]
  - Tremor [Unknown]
  - Blood folate decreased [Unknown]
  - Iron binding capacity total abnormal [Unknown]
  - Vitamin D abnormal [Unknown]
  - Thrombocytopenic purpura [Unknown]
  - Haemoglobin decreased [Unknown]
  - Dizziness [Unknown]
  - Fatigue [Unknown]
  - Cytogenetic abnormality [Unknown]
  - Platelet count decreased [Unknown]
  - Blood iron abnormal [Unknown]
  - Aspartate aminotransferase abnormal [Unknown]

NARRATIVE: CASE EVENT DATE: 20170519
